FAERS Safety Report 5746911-6 (Version None)
Quarter: 2008Q2

REPORT INFORMATION
  Report Type: 
  Country: None (occurrence: None)
  Receive Date: 20080522
  Receipt Date: 20080424
  Transmission Date: 20081010
  Serious: No
  Sender: FDA-Public Use
  Company Number: US-BOEHRINGER INGELHEIM GMBH, GERMANY-2008-BP-06489BP

PATIENT
  Age: 34 Year
  Sex: Female

DRUGS (2)
  1. ZANTAC 150 [Suspect]
     Indication: DYSPEPSIA
     Route: 048
     Dates: start: 20070101
  2. ZANTAC 150 [Suspect]
     Indication: GASTROINTESTINAL ULCER

REACTIONS (1)
  - DIARRHOEA [None]
